FAERS Safety Report 9150326 (Version 3)
Quarter: 2013Q1

REPORT INFORMATION
  Report Type: Report from Study
  Country: CA (occurrence: CA)
  Receive Date: 20130308
  Receipt Date: 20130329
  Transmission Date: 20140127
  Serious: Yes (Death, Other)
  Sender: FDA-Public Use
  Company Number: CA-ROCHE-1197329

PATIENT
  Age: 44 None
  Sex: Male
  Weight: 68 kg

DRUGS (11)
  1. AVASTIN [Suspect]
     Indication: GLIOBLASTOMA MULTIFORME
     Route: 042
     Dates: start: 20130124, end: 20130124
  2. DEXAMETHASONE [Concomitant]
  3. RANITIDINE [Concomitant]
  4. CLOBAZAM [Concomitant]
  5. TYLENOL [Concomitant]
  6. MELATONIN [Concomitant]
  7. SENOKOT [Concomitant]
  8. METHYLPREDNISOLONE [Concomitant]
     Indication: PREMEDICATION
     Route: 042
     Dates: start: 20130124, end: 20130124
  9. BENADRYL [Concomitant]
     Indication: PREMEDICATION
     Route: 048
     Dates: start: 20130124, end: 20130124
  10. VALPROIC ACID [Concomitant]
  11. OXYBUTYNIN CHLORIDE [Concomitant]
     Dosage: PRN
     Route: 065

REACTIONS (2)
  - Disease progression [Unknown]
  - Death [Fatal]
